FAERS Safety Report 20258143 (Version 2)
Quarter: 2022Q1

REPORT INFORMATION
  Report Type: Spontaneous
  Country: DE (occurrence: DE)
  Receive Date: 20211230
  Receipt Date: 20220221
  Transmission Date: 20220423
  Serious: Yes (Life-Threatening, Hospitalization, Other)
  Sender: FDA-Public Use
  Company Number: DE-002147023-NVSC2021DE289764

PATIENT
  Age: 75 Year
  Sex: Male

DRUGS (3)
  1. TRIAMCINOLONE ACETONIDE [Suspect]
     Active Substance: TRIAMCINOLONE ACETONIDE
     Indication: Back pain
     Dosage: UNK
     Route: 037
  2. ROPIVACAINE [Suspect]
     Active Substance: ROPIVACAINE
     Indication: Back pain
     Dosage: 4 ML OF ROPIVACAINE 10 MG/ML
     Route: 037
  3. SODIUM CHLORIDE [Suspect]
     Active Substance: SODIUM CHLORIDE
     Indication: Back pain
     Dosage: 20 ML OF NACI 0.9 PERCENT
     Route: 037

REACTIONS (5)
  - Anaesthetic complication [Recovered/Resolved]
  - Incorrect route of product administration [Unknown]
  - Circulatory collapse [Recovered/Resolved]
  - Somnolence [Recovered/Resolved]
  - Muscular weakness [Recovered/Resolved]
